FAERS Safety Report 9803564 (Version 1)
Quarter: 2014Q1

REPORT INFORMATION
  Report Type: Spontaneous
  Country: US (occurrence: US)
  Receive Date: 20140108
  Receipt Date: 20140108
  Transmission Date: 20141002
  Serious: No
  Sender: FDA-Public Use
  Company Number: US-GLAXOSMITHKLINE-A1008207A

PATIENT
  Age: 81 Year
  Sex: Female

DRUGS (1)
  1. LOVAZA [Suspect]
     Indication: BLOOD TRIGLYCERIDES INCREASED
     Dosage: 2CAP TWICE PER DAY

REACTIONS (3)
  - Eructation [Unknown]
  - Dysgeusia [Unknown]
  - Product quality issue [Unknown]
